FAERS Safety Report 7028470-3 (Version None)
Quarter: 2010Q3

REPORT INFORMATION
  Report Type: 
  Country: None (occurrence: None)
  Receive Date: 20100918
  Receipt Date: 20100803
  Transmission Date: 20110219
  Serious: Yes (Death)
  Sender: FDA-Public Use
  Company Number: 2010PROUSA00030

PATIENT
  Age: 79 Year
  Sex: Male

DRUGS (8)
  1. PROVENGE [Suspect]
     Indication: PROSTATE CANCER METASTATIC
     Dosage: 250 ML SINGLE INTRAVENOUS
     Route: 042
     Dates: start: 20100729, end: 20100729
  2. AVODART [Concomitant]
  3. FLOMAX [Concomitant]
  4. LUPRON [Concomitant]
  5. ZOMETA [Concomitant]
  6. EXTRA STRENGTH TYLENOL [Concomitant]
  7. CALCIUM WITH VITAMIN D (CALCIUM CARBONATE) [Concomitant]
  8. CHLORHEXIDINE (CHLORHEXIDINE) [Concomitant]

REACTIONS (1)
  - CEREBROVASCULAR ACCIDENT [None]
